FAERS Safety Report 4690154-4 (Version None)
Quarter: 2005Q2

REPORT INFORMATION
  Report Type: 
  Country: None (occurrence: None)
  Receive Date: 20050613
  Receipt Date: 20050530
  Transmission Date: 20051028
  Serious: Yes (Hospitalization)
  Sender: FDA-Public Use
  Company Number: 2001005126-FJ

PATIENT
  Age: 14 Year
  Sex: Male
  Weight: 44.4 kg

DRUGS (10)
  1. PROGRAF [Suspect]
     Indication: RENAL TRANSPLANT
     Dosage: SEE IMAGE
     Route: 048
     Dates: start: 19991128, end: 19991203
  2. PROGRAF [Suspect]
     Indication: RENAL TRANSPLANT
     Dosage: SEE IMAGE
     Route: 048
     Dates: start: 19991202, end: 19991204
  3. PROGRAF [Suspect]
     Indication: RENAL TRANSPLANT
     Dosage: SEE IMAGE
     Route: 048
     Dates: start: 19991205
  4. METHYLPREDNISOLONE [Concomitant]
  5. AZATHIOPRINE [Concomitant]
  6. L-CARTIN [Concomitant]
  7. DIGOSXIN (DIGOXIN) [Concomitant]
  8. CAPTORIL (CAPTOPRIL) [Concomitant]
  9. ZOVIRAX [Concomitant]
  10. COTRIM [Concomitant]

REACTIONS (2)
  - ANAEMIA HAEMOLYTIC AUTOIMMUNE [None]
  - TRANSFUSION WITH INCOMPATIBLE BLOOD [None]
